FAERS Safety Report 7005674-7 (Version None)
Quarter: 2010Q3

REPORT INFORMATION
  Report Type: 
  Country: None (occurrence: None)
  Receive Date: 20100921
  Receipt Date: 20100913
  Transmission Date: 20110219
  Serious: Yes (Other)
  Sender: FDA-Public Use
  Company Number: B0674789A

PATIENT
  Age: 34 Year
  Sex: Female
  Weight: 100 kg

DRUGS (2)
  1. CLOBETASOL PROPIONATE [Suspect]
     Dosage: 200G PER DAY
     Route: 061
  2. FLUOCINONIDE [Suspect]
     Dosage: 200G PER DAY
     Route: 061

REACTIONS (10)
  - BLOOD CORTICOTROPHIN DECREASED [None]
  - BLOOD CORTISOL DECREASED [None]
  - CUSHING'S SYNDROME [None]
  - ERYTHEMA [None]
  - FLUSHING [None]
  - HYPERTENSION [None]
  - OBESITY [None]
  - SKIN ATROPHY [None]
  - SKIN EXFOLIATION [None]
  - SKIN STRIAE [None]
